FAERS Safety Report 6856678-6 (Version None)
Quarter: 2010Q3

REPORT INFORMATION
  Report Type: 
  Country: None (occurrence: None)
  Receive Date: 20100716
  Receipt Date: 20100716
  Transmission Date: 20110219
  Serious: Yes (Other)
  Sender: FDA-Public Use
  Company Number: None

PATIENT
  Sex: Male

DRUGS (1)
  1. LAMOTRIGINE [Suspect]
     Indication: EPILEPSY
     Dosage: 300 MG Q12H PO
     Route: 048

REACTIONS (3)
  - DYSKINESIA [None]
  - PRODUCT SUBSTITUTION ISSUE [None]
  - PRURITUS [None]
